FAERS Safety Report 17411231 (Version 1)
Quarter: 2020Q1

REPORT INFORMATION
  Report Type: Spontaneous
  Country: US (occurrence: US)
  Receive Date: 20200212
  Receipt Date: 20200212
  Transmission Date: 20200409
  Serious: No
  Sender: FDA-Public Use
  Company Number: NVSC2020US035911

PATIENT
  Age: 65 Year
  Sex: Female

DRUGS (6)
  1. ONDANSETRON [Suspect]
     Active Substance: ONDANSETRON
     Indication: NAUSEA
     Dosage: UNK
     Route: 065
  2. VELIPARIB [Concomitant]
     Active Substance: VELIPARIB
     Indication: OVARIAN CANCER
     Dosage: 300 MG, BID
     Route: 048
  3. VELIPARIB [Concomitant]
     Active Substance: VELIPARIB
     Dosage: 200 MG, BID
     Route: 048
  4. PROCHLORPERAZINE. [Suspect]
     Active Substance: PROCHLORPERAZINE
     Indication: NAUSEA
     Dosage: UNK
     Route: 065
  5. LORAZEPAM. [Suspect]
     Active Substance: LORAZEPAM
     Indication: NAUSEA
     Dosage: UNK
     Route: 065
  6. BENDAMUSTINE [Concomitant]
     Active Substance: BENDAMUSTINE
     Indication: OVARIAN CANCER
     Dosage: 90 MG/M2, UNKNOWN
     Route: 065

REACTIONS (2)
  - Product use in unapproved indication [Unknown]
  - Drug ineffective [Unknown]
